FAERS Safety Report 5427324-3 (Version None)
Quarter: 2007Q3

REPORT INFORMATION
  Report Type: 
  Country: None (occurrence: None)
  Receive Date: 20070828
  Receipt Date: 20070820
  Transmission Date: 20080115
  Serious: Yes (Other)
  Sender: FDA-Public Use
  Company Number: DE-AMGEN-US240316

PATIENT
  Sex: Female

DRUGS (1)
  1. ENBREL [Suspect]
     Indication: RHEUMATOID ARTHRITIS
     Route: 064
     Dates: start: 20050815, end: 20060818

REACTIONS (3)
  - COMPUTERISED TOMOGRAM ABNORMAL [None]
  - FOETAL DISTRESS SYNDROME [None]
  - UMBILICAL CORD AROUND NECK [None]
